FAERS Safety Report 6573823-0 (Version None)
Quarter: 2010Q1

REPORT INFORMATION
  Report Type: 
  Country: None (occurrence: None)
  Receive Date: 20100208
  Receipt Date: 20100201
  Transmission Date: 20100710
  Serious: Yes (Other)
  Sender: FDA-Public Use
  Company Number: IT-MERCK-1002ITA00003

PATIENT
  Age: 13 Year
  Sex: Female

DRUGS (2)
  1. SINGULAIR [Suspect]
     Route: 048
     Dates: start: 20091201, end: 20091201
  2. SINGULAIR [Suspect]
     Route: 048
     Dates: start: 20091222, end: 20091225

REACTIONS (2)
  - GRAND MAL CONVULSION [None]
  - HEADACHE [None]
